FAERS Safety Report 17846566 (Version 1)
Quarter: 2020Q2

REPORT INFORMATION
  Report Type: Spontaneous
  Country: US (occurrence: US)
  Receive Date: 20200601
  Receipt Date: 20200601
  Transmission Date: 20200714
  Serious: Yes (Other)
  Sender: FDA-Public Use
  Company Number: US-PFIZER INC-2020211855

PATIENT
  Age: 4 Year
  Sex: Male

DRUGS (1)
  1. RAPAMUNE [Suspect]
     Active Substance: SIROLIMUS
     Dosage: 0.6 MG, DAILY

REACTIONS (3)
  - Product use issue [Unknown]
  - Off label use [Unknown]
  - Haemophilus infection [Recovering/Resolving]
